FAERS Safety Report 16452860 (Version 1)
Quarter: 2019Q2

REPORT INFORMATION
  Report Type: Spontaneous
  Country: US (occurrence: US)
  Receive Date: 20190619
  Receipt Date: 20190619
  Transmission Date: 20190711
  Serious: Yes (Other)
  Sender: FDA-Public Use
  Company Number: US-SA-2019SA157641

PATIENT
  Age: 76 Year
  Sex: Female

DRUGS (3)
  1. LOVENOX [Suspect]
     Active Substance: ENOXAPARIN SODIUM
     Indication: HIP SURGERY
     Dosage: UNK UNK, UNK
  2. WARFARIN SODIUM. [Suspect]
     Active Substance: WARFARIN SODIUM
     Indication: HIP SURGERY
     Dosage: UNK UNK, UNK
  3. LOVENOX [Suspect]
     Active Substance: ENOXAPARIN SODIUM
     Indication: SURGERY
     Dosage: 30 MG, QD
     Route: 065

REACTIONS (2)
  - Product prescribing error [Unknown]
  - Deep vein thrombosis [Unknown]
